FAERS Safety Report 13178703 (Version 1)
Quarter: 2017Q1

REPORT INFORMATION
  Report Type: Spontaneous
  Country: US (occurrence: US)
  Receive Date: 20170202
  Receipt Date: 20170202
  Transmission Date: 20170428
  Serious: Yes (Other)
  Sender: FDA-Public Use
  Company Number: US-ZYDUS-013619

PATIENT
  Age: 75 Year
  Sex: Male

DRUGS (2)
  1. PREDNISONE. [Concomitant]
     Active Substance: PREDNISONE
     Indication: MYASTHENIA GRAVIS
     Route: 065
  2. PYRIDOSTIGMINE [Suspect]
     Active Substance: PYRIDOSTIGMINE
     Indication: MYASTHENIA GRAVIS
     Route: 065

REACTIONS (8)
  - Angina pectoris [Unknown]
  - Anxiety [Unknown]
  - Electrocardiogram ST segment elevation [Unknown]
  - Hyperglycaemia [Unknown]
  - Dyspnoea [Unknown]
  - Chest discomfort [Unknown]
  - Electrocardiogram ST segment depression [Unknown]
  - Hyperhidrosis [Unknown]
